FAERS Safety Report 8499285-4 (Version None)
Quarter: 2012Q3

REPORT INFORMATION
  Report Type: 
  Country: None (occurrence: None)
  Receive Date: 20120710
  Receipt Date: 20120629
  Transmission Date: 20120928
  Serious: Yes (Death, Life-Threatening)
  Sender: FDA-Public Use
  Company Number: JP-BAYER-200913335BYL

PATIENT
  Age: 72 Year
  Sex: Male
  Weight: 56 kg

DRUGS (7)
  1. ADALAT CC [Concomitant]
     Dosage: 20 MG (DAILY DOSE), , ORAL
     Route: 048
     Dates: start: 20090817
  2. AMARYL [Concomitant]
     Dosage: SINCE BEFORE ADMINISTRATION
     Route: 048
  3. LANSOPRAZOLE [Concomitant]
     Indication: GASTRITIS PROPHYLAXIS
     Dosage: 30 MG (DAILY DOSE), , ORAL
     Route: 048
     Dates: start: 20090806
  4. SORAFENIB [Suspect]
     Indication: HEPATIC NEOPLASM MALIGNANT
     Dosage: 400 MG (DAILY DOSE), , ORAL
     Route: 048
     Dates: start: 20090805, end: 20090905
  5. CARVEDILOL [Concomitant]
     Dosage: SINCE BEFORE ADMINISTRATION
     Route: 048
  6. CANDESARTAN CILEXETIL [Concomitant]
     Dosage: SINCE BEFORE ADMINISTRATION
     Route: 048
  7. ALLOPURINOL [Concomitant]
     Indication: HYPERURICAEMIA
     Dosage: SINCE BEFORE ADMINISTRATION
     Route: 048

REACTIONS (6)
  - CARDIAC FAILURE [None]
  - HYPOGLYCAEMIA [None]
  - HYPERTENSION [None]
  - DIARRHOEA [None]
  - BLOOD PRESSURE INCREASED [None]
  - RESPIRATORY FAILURE [None]
